FAERS Safety Report 21364844 (Version 2)
Quarter: 2022Q4

REPORT INFORMATION
  Report Type: Spontaneous
  Country: ES (occurrence: ES)
  Receive Date: 20220922
  Receipt Date: 20221007
  Transmission Date: 20230112
  Serious: Yes (Death)
  Sender: FDA-Public Use
  Company Number: ES-TEVA-2022-ES-2074722

PATIENT
  Age: 18 Month
  Sex: Female

DRUGS (8)
  1. ETOPOSIDE [Suspect]
     Active Substance: ETOPOSIDE
     Indication: Acute megakaryocytic leukaemia
     Dosage: AS A PART OF INDUCTION CYCLES OF CYTARABINE, DAUNORUBICIN LIPOSOMAL AND ETOPOSIDE
     Route: 065
     Dates: start: 202104
  2. CLOFARABINE [Suspect]
     Active Substance: CLOFARABINE
     Indication: Acute megakaryocytic leukaemia
     Dosage: AS A PART OF SALVAGE CHEMOTHERAPY CONTAINED CLOFARABINE AND FLUDARABINE
     Route: 065
     Dates: start: 202108
  3. FLUDARABINE [Suspect]
     Active Substance: FLUDARABINE PHOSPHATE
     Indication: Acute megakaryocytic leukaemia
     Dosage: AS A PART OF SALVAGE CHEMOTHERAPY CONTAINED CLOFARABINE AND FLUDARABINE
     Route: 065
     Dates: start: 202108
  4. MITOXANTRONE [Suspect]
     Active Substance: MITOXANTRONE HYDROCHLORIDE
     Indication: Acute megakaryocytic leukaemia
     Dosage: FIRST COURSE OF MITOXANTRONE
     Route: 065
     Dates: start: 20210310
  5. MITOXANTRONE [Suspect]
     Active Substance: MITOXANTRONE HYDROCHLORIDE
     Dosage: AS A PART OF CONSOLIDATION COURSE OF HAM REGIMEN CONTAINED HIGH DOSE CYTARABINE [CYTOSINE ARABINOSID
     Route: 065
     Dates: start: 202106
  6. CYTARABINE [Suspect]
     Active Substance: CYTARABINE
     Indication: Acute megakaryocytic leukaemia
     Dosage: AS A PART OF INDUCTION CYCLES OF CYTARABINE, DAUNORUBICIN LIPOSOMAL AND ETOPOSIDE
     Route: 065
     Dates: start: 202104
  7. CYTARABINE [Suspect]
     Active Substance: CYTARABINE
     Dosage: AS A PART OF CONSOLIDATION COURSE OF HAM REGIMEN CONTAINED HIGH DOSE CYTARABINE [CYTOSINE ARABINOSID
     Route: 065
     Dates: start: 202106
  8. DAUNORUBICIN [Suspect]
     Active Substance: DAUNORUBICIN
     Indication: Acute megakaryocytic leukaemia
     Dosage: AS A PART OF INDUCTION CYCLES OF CYTARABINE, DAUNORUBICIN LIPOSOMAL AND ETOPOSIDE
     Route: 065
     Dates: start: 202104

REACTIONS (1)
  - Drug ineffective [Fatal]
